FAERS Safety Report 5518566-7 (Version None)
Quarter: 2007Q4

REPORT INFORMATION
  Report Type: 
  Country: None (occurrence: None)
  Receive Date: 20071115
  Receipt Date: 20071107
  Transmission Date: 20080405
  Serious: Yes (Hospitalization)
  Sender: FDA-Public Use
  Company Number: BR-ASTRAZENECA-2007UW25938

PATIENT
  Age: 47 Year
  Sex: Female
  Weight: 80 kg

DRUGS (7)
  1. CRESTOR [Suspect]
     Indication: HYPERCHOLESTEROLAEMIA
     Route: 048
     Dates: start: 20031101, end: 20040101
  2. CRESTOR [Suspect]
     Route: 048
     Dates: start: 20050101
  3. ZETIA [Concomitant]
     Indication: HYPERTRIGLYCERIDAEMIA
     Route: 048
     Dates: start: 20050101
  4. METFORMIA [Concomitant]
     Indication: HYPERGLYCAEMIA
     Route: 048
     Dates: start: 20050101
  5. PROPRANOLOL [Concomitant]
     Route: 048
     Dates: start: 20030101
  6. BENICAR [Concomitant]
     Indication: HYPERTENSION
     Route: 048
     Dates: start: 20070901
  7. AAS [Concomitant]
     Indication: ANTICOAGULANT THERAPY
     Route: 048
     Dates: start: 20030101

REACTIONS (3)
  - BLOOD PRESSURE FLUCTUATION [None]
  - DRUG INEFFECTIVE [None]
  - MYOCARDIAL INFARCTION [None]
